FAERS Safety Report 9157509 (Version 1)
Quarter: 2013Q1

REPORT INFORMATION
  Report Type: Report from Study
  Country: US (occurrence: US)
  Receive Date: 20130312
  Receipt Date: 20130312
  Transmission Date: 20140127
  Serious: Yes (Death, Other)
  Sender: FDA-Public Use
  Company Number: PHHO2013US003522

PATIENT
  Sex: Male

DRUGS (3)
  1. CICLOSPORIN [Suspect]
     Dosage: 250 MG, UNK
     Route: 048
     Dates: start: 20060416
  2. PREDNISONE [Concomitant]
     Indication: INFLAMMATION
     Dosage: UNK
     Dates: start: 20060415
  3. MYCOPHENOLATE MOFETIL [Concomitant]
     Dosage: UNK
     Dates: start: 20060415

REACTIONS (1)
  - Chronic myeloid leukaemia [Fatal]
